FAERS Safety Report 17117641 (Version 1)
Quarter: 2019Q4

REPORT INFORMATION
  Report Type: Spontaneous
  Country: US (occurrence: US)
  Receive Date: 20191205
  Receipt Date: 20191205
  Transmission Date: 20200122
  Serious: No
  Sender: FDA-Public Use
  Company Number: US-JNJFOC-20191137126

PATIENT
  Sex: Female
  Weight: 92.62 kg

DRUGS (7)
  1. TIZANIDINE. [Concomitant]
     Active Substance: TIZANIDINE
     Indication: PRODUCT USED FOR UNKNOWN INDICATION
     Route: 065
  2. GABAPENTIN. [Concomitant]
     Active Substance: GABAPENTIN
     Indication: LETHARGY
  3. BUSPAR [Concomitant]
     Active Substance: BUSPIRONE HYDROCHLORIDE
     Indication: PRODUCT USED FOR UNKNOWN INDICATION
     Route: 065
  4. GABAPENTIN. [Concomitant]
     Active Substance: GABAPENTIN
     Indication: FATIGUE
     Dosage: 2 TO 3 TIMES DAILY
     Route: 065
  5. INVEGA SUSTENNA [Suspect]
     Active Substance: PALIPERIDONE PALMITATE
     Indication: SCHIZOAFFECTIVE DISORDER
     Route: 030
     Dates: start: 201908
  6. DICLOFENAC [Concomitant]
     Active Substance: DICLOFENAC
     Indication: PRODUCT USED FOR UNKNOWN INDICATION
     Route: 065
  7. HYDROXYZINE PAMOATE. [Concomitant]
     Active Substance: HYDROXYZINE PAMOATE
     Indication: PRODUCT USED FOR UNKNOWN INDICATION
     Route: 065

REACTIONS (14)
  - Psychomotor hyperactivity [Unknown]
  - Rapid eye movements sleep abnormal [Unknown]
  - Nervousness [Unknown]
  - Product dose omission [Unknown]
  - Movement disorder [Unknown]
  - Dyskinesia [Unknown]
  - Stereotypy [Unknown]
  - Off label use [Unknown]
  - Decreased appetite [Unknown]
  - Restlessness [Unknown]
  - Discomfort [Unknown]
  - Weight decreased [Unknown]
  - Muscle twitching [Unknown]
  - Incorrect dose administered [Unknown]

NARRATIVE: CASE EVENT DATE: 2019
